FAERS Safety Report 5299138-9 (Version None)
Quarter: 2007Q2

REPORT INFORMATION
  Report Type: 
  Country: None (occurrence: None)
  Receive Date: 20070411
  Receipt Date: 20070411
  Transmission Date: 20071010
  Serious: No
  Sender: FDA-Public Use
  Company Number: None

PATIENT
  Age: 76 Year
  Sex: Male
  Weight: 97.5234 kg

DRUGS (1)
  1. QUININE 325 MG (1 EA) [Suspect]
     Indication: MUSCLE SPASMS
     Dosage: ONCE

REACTIONS (4)
  - CHILLS [None]
  - DIARRHOEA [None]
  - TREMOR [None]
  - VOMITING [None]
